FAERS Safety Report 15676251 (Version 15)
Quarter: 2022Q3

REPORT INFORMATION
  Report Type: Report from Study
  Country: BR (occurrence: BR)
  Receive Date: 20181130
  Receipt Date: 20220624
  Transmission Date: 20221026
  Serious: Yes (Life-Threatening, Hospitalization, Disabling, Other)
  Sender: FDA-Public Use
  Company Number: PHHY2015BR093164

PATIENT
  Age: 75 Year
  Sex: Female
  Weight: 52 kg

DRUGS (29)
  1. XOLAIR [Suspect]
     Active Substance: OMALIZUMAB
     Indication: Asthma
     Dosage: 150 MG, QMO
     Route: 058
     Dates: start: 2012
  2. XOLAIR [Suspect]
     Active Substance: OMALIZUMAB
     Indication: Hypersensitivity
     Dosage: 150 MG, QW (1 AMPOLE)
     Route: 058
     Dates: start: 201402
  3. XOLAIR [Suspect]
     Active Substance: OMALIZUMAB
     Dosage: 150 MG, QMO
     Route: 058
     Dates: start: 20150223
  4. XOLAIR [Suspect]
     Active Substance: OMALIZUMAB
     Dosage: 150 MG, QMO
     Route: 058
     Dates: start: 20150316
  5. XOLAIR [Suspect]
     Active Substance: OMALIZUMAB
     Dosage: UNK
     Route: 058
     Dates: start: 20160118
  6. XOLAIR [Suspect]
     Active Substance: OMALIZUMAB
     Dosage: 150 MG, QMO
     Route: 058
  7. XOLAIR [Suspect]
     Active Substance: OMALIZUMAB
     Dosage: UNK
     Route: 058
     Dates: start: 201612
  8. XOLAIR [Suspect]
     Active Substance: OMALIZUMAB
     Dosage: 150 MG, QMO
     Route: 058
     Dates: start: 20170208
  9. XOLAIR [Suspect]
     Active Substance: OMALIZUMAB
     Dosage: 1 DF, QMO
     Route: 058
  10. XOLAIR [Suspect]
     Active Substance: OMALIZUMAB
     Dosage: 150 MG, EVERY 4 WEEKS
     Route: 058
     Dates: start: 2017
  11. XOLAIR [Suspect]
     Active Substance: OMALIZUMAB
     Dosage: 1 DF, QMO
     Route: 058
     Dates: start: 201704
  12. XOLAIR [Suspect]
     Active Substance: OMALIZUMAB
     Dosage: UNK
     Route: 058
     Dates: start: 20170708
  13. XOLAIR [Suspect]
     Active Substance: OMALIZUMAB
     Dosage: 150 MG, QMO
     Route: 058
     Dates: start: 20180208
  14. XOLAIR [Suspect]
     Active Substance: OMALIZUMAB
     Dosage: UNK
     Route: 058
     Dates: start: 20190211
  15. GLYCOPYRROLATE [Suspect]
     Active Substance: GLYCOPYRROLATE
     Indication: Asthma
     Dosage: UNK UNK, QD
     Route: 065
  16. OMEPRAZOLE [Suspect]
     Active Substance: OMEPRAZOLE
     Indication: Gastric perforation
     Dosage: 1 DF, QD (STARTED 20 YEARS AGO)
     Route: 048
  17. SIMVASTATIN [Suspect]
     Active Substance: SIMVASTATIN
     Indication: Product used for unknown indication
     Dosage: 1 DF, QD (STARTED 30 YEARS AGO)
     Route: 048
  18. PREDNISONE [Suspect]
     Active Substance: PREDNISONE
     Indication: Product used for unknown indication
     Dosage: 20 MG, QD; 5 DAYS
     Route: 065
  19. HISTAMINE [Concomitant]
     Active Substance: HISTAMINE
     Indication: Product used for unknown indication
     Route: 065
  20. POLARAMINE [Concomitant]
     Active Substance: DEXCHLORPHENIRAMINE MALEATE
     Indication: Product used for unknown indication
     Route: 065
  21. BUDESONIDE [Concomitant]
     Active Substance: BUDESONIDE
     Indication: Product used for unknown indication
     Route: 065
  22. PURAN [Concomitant]
     Active Substance: LEVOTHYROXINE SODIUM
     Indication: Hypothyroidism
     Dosage: 1 DF, QD (STARTED 40 YEARS AGO)
     Route: 048
  23. AMOXICILLIN [Concomitant]
     Active Substance: AMOXICILLIN
     Indication: Product used for unknown indication
     Route: 065
  24. SERETIDE [Concomitant]
     Active Substance: FLUTICASONE PROPIONATE\SALMETEROL XINAFOATE
     Indication: Asthma
     Dosage: UNK UNK, QD
     Route: 055
     Dates: start: 20180506
  25. GLICLAZIDE [Concomitant]
     Active Substance: GLICLAZIDE
     Indication: Diabetes mellitus
     Dosage: 2 DF, QD (STARTED 2 YEARS AGO)
     Route: 048
  26. GLICLAZIDE [Concomitant]
     Active Substance: GLICLAZIDE
     Indication: Diabetes mellitus
     Dosage: (MANY YEARS)
     Route: 065
  27. SINOCORT [Concomitant]
     Indication: Asthma
     Route: 065
  28. ALBUTEROL [Concomitant]
     Active Substance: ALBUTEROL
     Indication: Product used for unknown indication
     Route: 065
  29. BEROTEC [Concomitant]
     Active Substance: FENOTEROL HYDROBROMIDE
     Indication: Product used for unknown indication
     Route: 065

REACTIONS (79)
  - Hypersensitivity [Recovered/Resolved]
  - Feeling abnormal [Not Recovered/Not Resolved]
  - Dust allergy [Not Recovered/Not Resolved]
  - Cough [Not Recovered/Not Resolved]
  - Asthmatic crisis [Recovering/Resolving]
  - Cough [Recovered/Resolved]
  - Chest pain [Not Recovered/Not Resolved]
  - Malaise [Not Recovered/Not Resolved]
  - Asthma [Not Recovered/Not Resolved]
  - Dislocation of vertebra [Unknown]
  - Spinal pain [Unknown]
  - Fall [Recovering/Resolving]
  - Dyspnoea [Not Recovered/Not Resolved]
  - Hypersensitivity [Recovered/Resolved]
  - Allergic cough [Recovering/Resolving]
  - Memory impairment [Not Recovered/Not Resolved]
  - Head discomfort [Not Recovered/Not Resolved]
  - Hyperthyroidism [Unknown]
  - Asthma [Not Recovered/Not Resolved]
  - Asthma [Recovered/Resolved]
  - Sputum discoloured [Recovered/Resolved]
  - Illness [Recovered/Resolved]
  - Epistaxis [Recovered/Resolved]
  - Body height decreased [Unknown]
  - Suffocation feeling [Recovered/Resolved]
  - Stress [Unknown]
  - Pain [Recovering/Resolving]
  - Dyspnoea [Recovered/Resolved]
  - Secretion discharge [Recovering/Resolving]
  - Depressed mood [Unknown]
  - Hyperhidrosis [Recovered/Resolved]
  - Burning sensation [Not Recovered/Not Resolved]
  - Skin irritation [Unknown]
  - Vaginal disorder [Recovering/Resolving]
  - Nasal congestion [Recovered/Resolved]
  - Abdominal pain upper [Unknown]
  - Erythema [Recovered/Resolved]
  - Sputum discoloured [Not Recovered/Not Resolved]
  - Mobility decreased [Not Recovered/Not Resolved]
  - Weight decreased [Unknown]
  - Sinusitis [Recovering/Resolving]
  - Sinusitis [Recovered/Resolved]
  - Wheezing [Unknown]
  - Sneezing [Unknown]
  - Emotional distress [Unknown]
  - Heart rate increased [Unknown]
  - Hypoacusis [Unknown]
  - Cardiac disorder [Unknown]
  - Back pain [Unknown]
  - Upper limb fracture [Unknown]
  - Nasopharyngitis [Recovered/Resolved]
  - Pruritus [Unknown]
  - Rhinitis [Recovered/Resolved]
  - Productive cough [Not Recovered/Not Resolved]
  - Fatigue [Recovered/Resolved]
  - Cough [Recovered/Resolved]
  - Hypersensitivity [Not Recovered/Not Resolved]
  - Fatigue [Unknown]
  - Rash vesicular [Recovered/Resolved]
  - Headache [Unknown]
  - Blood pressure fluctuation [Unknown]
  - Sensitivity to weather change [Recovering/Resolving]
  - Decreased appetite [Recovered/Resolved]
  - Blood pressure increased [Not Recovered/Not Resolved]
  - Nervousness [Not Recovered/Not Resolved]
  - Illness [Not Recovered/Not Resolved]
  - Limb discomfort [Not Recovered/Not Resolved]
  - Musculoskeletal stiffness [Not Recovered/Not Resolved]
  - Pain in extremity [Not Recovered/Not Resolved]
  - Hypoaesthesia [Not Recovered/Not Resolved]
  - Musculoskeletal pain [Not Recovered/Not Resolved]
  - Product use in unapproved indication [Unknown]
  - Hand fracture [Not Recovered/Not Resolved]
  - Fear [Not Recovered/Not Resolved]
  - Disturbance in social behaviour [Not Recovered/Not Resolved]
  - Hypersomnia [Unknown]
  - Arthralgia [Unknown]
  - Bronchitis [Not Recovered/Not Resolved]
  - Drug ineffective [Unknown]

NARRATIVE: CASE EVENT DATE: 20170309
